FAERS Safety Report 13565462 (Version 2)
Quarter: 2018Q1

REPORT INFORMATION
  Report Type: Report from Study
  Country: US (occurrence: US)
  Receive Date: 20170519
  Receipt Date: 20180315
  Transmission Date: 20180508
  Serious: Yes (Hospitalization)
  Sender: FDA-Public Use
  Company Number: US-ACTELION-A-US2017-154075

PATIENT
  Age: 50 Year
  Sex: Female
  Weight: 108.84 kg

DRUGS (5)
  1. ADCIRCA [Concomitant]
     Active Substance: TADALAFIL
  2. UPTRAVI [Suspect]
     Active Substance: SELEXIPAG
     Indication: PULMONARY ARTERIAL HYPERTENSION
     Dosage: 1600 MCG, BID
     Route: 048
  3. ELIQUIS [Concomitant]
     Active Substance: APIXABAN
  4. WARFARIN [Concomitant]
     Active Substance: WARFARIN
  5. OPSUMIT [Suspect]
     Active Substance: MACITENTAN
     Indication: PULMONARY ARTERIAL HYPERTENSION
     Dosage: 10 MG, UNK
     Route: 048

REACTIONS (3)
  - Hyperglycaemia [Unknown]
  - Thrombosis [Unknown]
  - Vitamin D decreased [Unknown]
